FAERS Safety Report 7572879-6 (Version None)
Quarter: 2011Q2

REPORT INFORMATION
  Report Type: 
  Country: None (occurrence: None)
  Receive Date: 20110627
  Receipt Date: 20110614
  Transmission Date: 20111010
  Serious: Yes (Other)
  Sender: FDA-Public Use
  Company Number: US-ELI_LILLY_AND_COMPANY-US201106005520

PATIENT
  Sex: Female

DRUGS (2)
  1. CYMBALTA [Suspect]
     Indication: PAIN
     Dosage: 60 MG, EACH EVENING
     Dates: start: 20090101
  2. CYMBALTA [Suspect]
     Dosage: 30 MG, UNK
     Dates: start: 20110613

REACTIONS (3)
  - THROAT TIGHTNESS [None]
  - GASTRIC BYPASS [None]
  - INTENTIONAL DRUG MISUSE [None]
